FAERS Safety Report 14372243 (Version 1)
Quarter: 2018Q1

REPORT INFORMATION
  Report Type: Report from Study
  Country: US (occurrence: US)
  Receive Date: 20180110
  Receipt Date: 20180110
  Transmission Date: 20180509
  Serious: Yes (Other)
  Sender: FDA-Public Use
  Company Number: US-AMGEN-USASL2018001172

PATIENT
  Age: 78 Year
  Sex: Female

DRUGS (1)
  1. REPATHA [Suspect]
     Active Substance: EVOLOCUMAB
     Indication: HYPERCHOLESTEROLAEMIA
     Dosage: 140 MG, Q2WK
     Route: 065

REACTIONS (8)
  - Fatigue [Unknown]
  - Pyrexia [Unknown]
  - Tremor [Unknown]
  - Memory impairment [Unknown]
  - Bronchitis [Unknown]
  - Atypical pneumonia [Unknown]
  - Inappropriate schedule of drug administration [Unknown]
  - Sinusitis [Unknown]

NARRATIVE: CASE EVENT DATE: 201712
